FAERS Safety Report 5087915-9 (Version None)
Quarter: 2006Q3

REPORT INFORMATION
  Report Type: 
  Country: None (occurrence: None)
  Receive Date: 20060821
  Receipt Date: 20060803
  Transmission Date: 20061208
  Serious: Yes (Other)
  Sender: FDA-Public Use
  Company Number: DSA_28568_2006

PATIENT
  Age: 74 Year
  Sex: Male

DRUGS (11)
  1. CARDIZEM CD [Suspect]
     Indication: HYPERTENSION
     Dosage: 120 MG QD PO
     Route: 048
     Dates: start: 20060801
  2. PREDNISONE TAB [Concomitant]
  3. SPIRIVA [Concomitant]
  4. AUGMENTIN [Concomitant]
  5. METOPROLOL TARTRATE [Concomitant]
  6. FLOMAX [Concomitant]
  7. FLOVENT [Concomitant]
  8. AVANDIA [Concomitant]
  9. INSULIN [Concomitant]
  10. ALBUTEROL [Concomitant]
  11. COUMADIN [Concomitant]

REACTIONS (3)
  - BRADYCARDIA [None]
  - DRUG ADMINISTRATION ERROR [None]
  - WRONG TECHNIQUE IN DRUG USAGE PROCESS [None]
